FAERS Safety Report 6165473-5 (Version None)
Quarter: 2009Q2

REPORT INFORMATION
  Report Type: 
  Country: None (occurrence: None)
  Receive Date: 20090423
  Receipt Date: 20090415
  Transmission Date: 20091009
  Serious: Yes (Other)
  Sender: FDA-Public Use
  Company Number: AR-BRISTOL-MYERS SQUIBB COMPANY-14596977

PATIENT
  Sex: Female

DRUGS (4)
  1. ERBITUX [Suspect]
     Indication: COLORECTAL CANCER STAGE IV
  2. FLUOROURACIL [Concomitant]
     Indication: COLORECTAL CANCER STAGE IV
  3. IRINOTECAN HCL [Concomitant]
     Indication: COLORECTAL CANCER STAGE IV
  4. FOLINIC ACID [Concomitant]
     Indication: COLORECTAL CANCER STAGE IV

REACTIONS (3)
  - HYPOTONIA [None]
  - RASH [None]
  - WALKING DISABILITY [None]
